FAERS Safety Report 17468006 (Version 1)
Quarter: 2020Q1

REPORT INFORMATION
  Report Type: Spontaneous
  Country: US (occurrence: US)
  Receive Date: 20200214
  Receipt Date: 20200214
  Transmission Date: 20200409
  Serious: No
  Sender: FDA-Public Use
  Company Number: None

PATIENT
  Age: 72 Year
  Sex: Female

DRUGS (1)
  1. OLUMIANT [Suspect]
     Active Substance: BARICITINIB
     Dosage: ?          OTHER DOSE:TAKE 1 TABLETS BY ;?
     Route: 048
     Dates: start: 201911

REACTIONS (2)
  - Fall [None]
  - Hip fracture [None]
